FAERS Safety Report 9692099 (Version 2)
Quarter: 2014Q1

REPORT INFORMATION
  Report Type: Spontaneous
  Country: US (occurrence: US)
  Receive Date: 20131118
  Receipt Date: 20140206
  Transmission Date: 20141002
  Serious: Yes (Hospitalization)
  Sender: FDA-Public Use
  Company Number: US-BIOGENIDEC-2013BI108487

PATIENT
  Age: 33 Year
  Sex: Male

DRUGS (4)
  1. AVONEX [Suspect]
     Indication: MULTIPLE SCLEROSIS
     Route: 030
     Dates: start: 20070530
  2. WELLBUTRIN [Concomitant]
     Indication: DEPRESSION
     Route: 048
  3. ALBUTEROL [Concomitant]
     Route: 055
  4. PROVIGIL [Concomitant]
     Indication: FATIGUE
     Route: 048

REACTIONS (4)
  - Appendicitis perforated [Recovered/Resolved]
  - Intestinal perforation [Unknown]
  - Incision site pain [Not Recovered/Not Resolved]
  - Post procedural complication [Recovered/Resolved]
